FAERS Safety Report 7150608-8 (Version None)
Quarter: 2010Q4

REPORT INFORMATION
  Report Type: 
  Country: None (occurrence: None)
  Receive Date: 20101210
  Receipt Date: 20101130
  Transmission Date: 20110411
  Serious: Yes (Hospitalization)
  Sender: FDA-Public Use
  Company Number: US-PFIZER INC-US-WYE-H17363410

PATIENT
  Sex: Female
  Weight: 71.2 kg

DRUGS (2)
  1. PRISTIQ [Suspect]
     Dosage: 50.0 MG, 1X/DAY
     Route: 048
     Dates: start: 20100805
  2. NORCO [Concomitant]
     Indication: PAIN
     Dosage: UNK

REACTIONS (9)
  - BALANCE DISORDER [None]
  - CHEST PAIN [None]
  - DISORIENTATION [None]
  - DIZZINESS [None]
  - HEADACHE [None]
  - HEART RATE DECREASED [None]
  - HYPERSENSITIVITY [None]
  - LOSS OF CONSCIOUSNESS [None]
  - NAUSEA [None]
